FAERS Safety Report 5578671-6 (Version None)
Quarter: 2008Q1

REPORT INFORMATION
  Report Type: 
  Country: None (occurrence: None)
  Receive Date: 20080102
  Receipt Date: 20071217
  Transmission Date: 20080703
  Serious: Yes (Other)
  Sender: FDA-Public Use
  Company Number: JP-JNJFOC-20071203662

PATIENT
  Age: 71 Year
  Sex: Male

DRUGS (12)
  1. DUROTEP [Suspect]
     Indication: DRUG USE FOR UNKNOWN INDICATION
     Route: 062
  2. RISPERDAL [Suspect]
     Route: 048
  3. RISPERDAL [Suspect]
     Indication: DELIRIUM
     Dosage: 0.5-2MG/DAY
     Route: 048
  4. ARTIST [Concomitant]
     Route: 065
  5. GLYSENNID [Concomitant]
     Route: 065
  6. GASTER [Concomitant]
     Route: 065
  7. ALDACTONE [Concomitant]
     Route: 065
  8. DIGOXIN [Concomitant]
     Route: 065
  9. OPSO [Concomitant]
     Route: 065
  10. WARFARIN SODIUM [Concomitant]
     Route: 065
  11. NOVAMIN [Concomitant]
     Route: 065
  12. MS CONTIN [Concomitant]
     Route: 065

REACTIONS (2)
  - BLOOD GLUCOSE INCREASED [None]
  - HEPATIC FUNCTION ABNORMAL [None]
